FAERS Safety Report 5533675-4 (Version None)
Quarter: 2007Q4

REPORT INFORMATION
  Report Type: 
  Country: None (occurrence: None)
  Receive Date: 20071204
  Receipt Date: 20071126
  Transmission Date: 20080405
  Serious: Yes (Hospitalization)
  Sender: FDA-Public Use
  Company Number: JP-ELI_LILLY_AND_COMPANY-JP200711006132

PATIENT
  Age: 51 Year
  Sex: Male

DRUGS (4)
  1. HUMACART REGULAR [Suspect]
     Indication: TYPE 1 DIABETES MELLITUS
     Dosage: 5 IU, 2/D
     Route: 058
  2. HUMACART REGULAR [Suspect]
     Dosage: 5 IU, DAILY (1/D)
     Route: 058
  3. HUMACART REGULAR [Suspect]
     Dosage: 8 IU, EACH EVENING
     Route: 058
  4. HUMULIN N [Suspect]
     Indication: TYPE 1 DIABETES MELLITUS
     Dosage: 7 IU, DAILY (1/D)
     Route: 058

REACTIONS (6)
  - BLOOD GLUCOSE INCREASED [None]
  - CARDIAC ENZYMES INCREASED [None]
  - CHEST PAIN [None]
  - ECG SIGNS OF MYOCARDIAL ISCHAEMIA [None]
  - HYPOGLYCAEMIC COMA [None]
  - SHOCK [None]
